FAERS Safety Report 15894770 (Version 3)
Quarter: 2019Q2

REPORT INFORMATION
  Report Type: Spontaneous
  Country: US (occurrence: US)
  Receive Date: 20190131
  Receipt Date: 20190423
  Transmission Date: 20190711
  Serious: Yes (Hospitalization, Other)
  Sender: FDA-Public Use
  Company Number: US-PFIZER INC-2019037851

PATIENT
  Age: 64 Year
  Sex: Female
  Weight: 66 kg

DRUGS (1)
  1. LYRICA [Suspect]
     Active Substance: PREGABALIN
     Indication: NERVE INJURY
     Dosage: 300 MG, DAILY (SHE TOOK 4 CAPSULES PER DAY)
     Route: 048
     Dates: start: 2017

REACTIONS (7)
  - Nausea [Unknown]
  - Dizziness [Unknown]
  - Vertigo [Recovered/Resolved]
  - Loss of consciousness [Unknown]
  - Therapeutic product effect decreased [Unknown]
  - Cold sweat [Unknown]
  - Intentional product misuse [Unknown]

NARRATIVE: CASE EVENT DATE: 2017
